FAERS Safety Report 13330946 (Version 1)
Quarter: 2017Q1

REPORT INFORMATION
  Report Type: Spontaneous
  Country: GB (occurrence: GB)
  Receive Date: 20170314
  Receipt Date: 20170314
  Transmission Date: 20170428
  Serious: Yes (Hospitalization)
  Sender: FDA-Public Use
  Company Number: GB-ACCORD-045606

PATIENT
  Age: 60 Year
  Sex: Female

DRUGS (8)
  1. AMLODIPINE [Concomitant]
     Active Substance: AMLODIPINE BESYLATE
  2. LORATADINE. [Concomitant]
     Active Substance: LORATADINE
  3. PROPRANOLOL [Suspect]
     Active Substance: PROPRANOLOL HYDROCHLORIDE
     Indication: PRODUCT USED FOR UNKNOWN INDICATION
     Route: 048
     Dates: start: 201501, end: 201610
  4. CAPASAL [Concomitant]
     Dosage: THERAPEUTIC SHAMPOO
  5. DERMOL [Concomitant]
     Active Substance: BENZALKONIUM CHLORIDE\CHLORHEXIDINE HYDROCHLORIDE\ISOPROPYL MYRISTATE\PARAFFIN
     Dosage: SHOWER EMOLLIENT
  6. CETRABEN [Concomitant]
     Active Substance: PARAFFIN
     Dosage: EMOLLIENT CREAM
  7. ESCITALOPRAM [Suspect]
     Active Substance: ESCITALOPRAM OXALATE
     Indication: PRODUCT USED FOR UNKNOWN INDICATION
  8. DOVOBET [Concomitant]
     Active Substance: BETAMETHASONE\CALCIPOTRIENE

REACTIONS (6)
  - Psoriasis [Unknown]
  - Feeling jittery [Unknown]
  - Loss of consciousness [Unknown]
  - Palpitations [Unknown]
  - Hyperhidrosis [None]
  - Hot flush [Unknown]

NARRATIVE: CASE EVENT DATE: 20160704
